FAERS Safety Report 16702564 (Version 1)
Quarter: 2019Q3

REPORT INFORMATION
  Report Type: Spontaneous
  Country: US (occurrence: US)
  Receive Date: 20190814
  Receipt Date: 20190814
  Transmission Date: 20191004
  Serious: No
  Sender: FDA-Public Use
  Company Number: US-ALLERGAN-1930133US

PATIENT
  Sex: Female

DRUGS (1)
  1. FETZIMA [Suspect]
     Active Substance: LEVOMILNACIPRAN HYDROCHLORIDE
     Indication: PRODUCT USED FOR UNKNOWN INDICATION
     Dosage: 60 MG (HALF OF 40 MG CAPSULE TO EQUATE TO ONE 20 MG CAPSULE ALONG WITH ONE 40 MG CAPSULE)
     Route: 065

REACTIONS (1)
  - Wrong technique in product usage process [Unknown]
